FAERS Safety Report 16458462 (Version 1)
Quarter: 2019Q2

REPORT INFORMATION
  Report Type: Spontaneous
  Country: US (occurrence: US)
  Receive Date: 20190620
  Receipt Date: 20190620
  Transmission Date: 20190711
  Serious: No
  Sender: FDA-Public Use
  Company Number: US-THERAPEUTICSMD-2019TMD00299

PATIENT
  Sex: Female

DRUGS (2)
  1. VITAMIN B12 [Suspect]
     Active Substance: CYANOCOBALAMIN
     Dosage: 1 DOSAGE UNITS, 1X/MONTH
     Route: 051
  2. IMVEXXY [Suspect]
     Active Substance: ESTRADIOL
     Dosage: 10 ?G, 1X/DAY
     Dates: start: 20190220

REACTIONS (2)
  - Injection site bruising [Unknown]
  - Vessel puncture site haemorrhage [Unknown]

NARRATIVE: CASE EVENT DATE: 2019
